FAERS Safety Report 18944761 (Version 1)
Quarter: 2021Q1

REPORT INFORMATION
  Report Type: Spontaneous
  Country: US (occurrence: US)
  Receive Date: 20210226
  Receipt Date: 20210226
  Transmission Date: 20210420
  Serious: Yes (Other)
  Sender: FDA-Public Use
  Company Number: None

PATIENT
  Age: 34 Month
  Sex: Male
  Weight: 10.9 kg

DRUGS (22)
  1. PULMICORT TURBUHALER [Concomitant]
     Active Substance: BUDESONIDE
     Dates: start: 20200101
  2. ATROVENT NEBS [Concomitant]
     Dates: start: 20200101
  3. EUCERIN [Concomitant]
     Active Substance: ENSULIZOLE\EUCERIN\OCTINOXATE\OCTISALATE\TITANIUM DIOXIDE\ZINC OXIDE
     Dates: start: 20200101
  4. ZOMETA [Suspect]
     Active Substance: ZOLEDRONIC ACID
     Indication: OSTEOPENIA
     Dosage: ?          OTHER FREQUENCY:EVERY 6 MONTHS;?
     Route: 042
     Dates: start: 20210211, end: 20210211
  5. GLYCERIN. [Concomitant]
     Active Substance: GLYCERIN
     Dates: start: 20200101
  6. REFRESH OINTMENT [Concomitant]
     Dates: start: 20210101
  7. ACETAMINOPHEN. [Concomitant]
     Active Substance: ACETAMINOPHEN
     Dates: start: 20200101
  8. CIPRODEX [Concomitant]
     Active Substance: CIPROFLOXACIN HYDROCHLORIDE\DEXAMETHASONE
     Dates: start: 20200101
  9. DILAUDID [Concomitant]
     Active Substance: HYDROMORPHONE HYDROCHLORIDE
     Dates: start: 20200918
  10. XOPENEX [Concomitant]
     Active Substance: LEVALBUTEROL HYDROCHLORIDE
     Dates: start: 20210101
  11. TOBRAMYCIN INHALATION [Concomitant]
     Active Substance: TOBRAMYCIN
     Dates: start: 20200101
  12. CLONIDINE. [Concomitant]
     Active Substance: CLONIDINE
     Dates: start: 20200101
  13. HEPARIN FLUSH [Concomitant]
     Active Substance: HEPARIN SODIUM
     Dates: start: 20200101
  14. MICONAZOLE. [Concomitant]
     Active Substance: MICONAZOLE
     Dates: start: 20200101
  15. PRECEDEX [Concomitant]
     Active Substance: DEXMEDETOMIDINE HYDROCHLORIDE
     Dates: start: 20210225
  16. COLACE [Concomitant]
     Active Substance: DOCUSATE SODIUM
     Dates: start: 20200101
  17. AZITHROMYCIN ANHYDROUS. [Concomitant]
     Active Substance: AZITHROMYCIN ANHYDROUS
     Dates: start: 20200101
  18. CALCITRIOL. [Concomitant]
     Active Substance: CALCITRIOL
     Dates: start: 20200101
  19. PEPCID [Concomitant]
     Active Substance: FAMOTIDINE
     Dates: start: 20200101
  20. MELATONIN [Concomitant]
     Active Substance: MELATONIN
     Dates: start: 20200101
  21. SEROQUEL [Concomitant]
     Active Substance: QUETIAPINE FUMARATE
     Dates: start: 20200101
  22. SILDENAFIL. [Concomitant]
     Active Substance: SILDENAFIL
     Dates: start: 20210101

REACTIONS (1)
  - Acute kidney injury [None]

NARRATIVE: CASE EVENT DATE: 20210225
